FAERS Safety Report 9448467 (Version 2)
Quarter: 2014Q2

REPORT INFORMATION
  Report Type: Spontaneous
  Country: US (occurrence: US)
  Receive Date: 20130808
  Receipt Date: 20140603
  Transmission Date: 20141212
  Serious: Yes (Hospitalization)
  Sender: FDA-Public Use
  Company Number: US-PFIZER INC-2013231155

PATIENT
  Age: 46 Year
  Sex: Female

DRUGS (18)
  1. LYRICA [Suspect]
     Indication: NEURALGIA
     Dosage: 200 MG, THREE TIMES A DAY
     Route: 048
     Dates: start: 2008
  2. ASPIRIN [Concomitant]
     Dosage: 81 MG, 1X/DAY
  3. BACLOFEN [Concomitant]
     Dosage: 20 MG, 3X/DAY
  4. PROTONIX [Concomitant]
     Dosage: UNK
  5. PANTOPRAZOLE SODIUM [Concomitant]
     Dosage: 40 MG, QD
  6. CITALOPRAM HYDROBROMIDE [Concomitant]
     Dosage: 20 MG, 1X/DAY
  7. CITALOPRAM HYDROBROMIDE [Concomitant]
     Dosage: 40, 1 QD
     Route: 048
  8. VESICARE [Concomitant]
     Dosage: 5 MG, QD
  9. TERCONAZOLE [Concomitant]
     Dosage: 0.8 % CREA
  10. BUPROPION HYDROCHLORIDE [Concomitant]
     Dosage: 150 MG, BID
  11. MACROBID [Concomitant]
     Dosage: 100 MG, QD
     Route: 048
  12. VITAMIN B-12 [Concomitant]
     Dosage: 100 UG, 1X/DAY
  13. MELOXICAM [Concomitant]
     Dosage: 15 MG, QD
  14. LOPERAMIDE HYDROCHLORIDE [Concomitant]
     Dosage: 1MG/5ML, QD
  15. CYANOCOBALAMIN [Concomitant]
     Dosage: 1000, UUD
  16. TRAZODONE HYDROCHLORIDE [Concomitant]
     Dosage: 50 MG, QD
  17. VITAMIN C [Concomitant]
     Dosage: 250 MG, UUD
  18. CULTURELLE [Concomitant]
     Dosage: 10 B CELL CAPS, QD

REACTIONS (1)
  - Appendicitis perforated [Recovering/Resolving]
